FAERS Safety Report 6270907-1 (Version None)
Quarter: 2009Q3

REPORT INFORMATION
  Report Type: 
  Country: None (occurrence: None)
  Receive Date: 20090716
  Receipt Date: 20090630
  Transmission Date: 20100115
  Serious: Yes (Other)
  Sender: FDA-Public Use
  Company Number: PHHY2009KR26684

PATIENT
  Sex: Female

DRUGS (1)
  1. GLEEVEC [Suspect]
     Indication: CHRONIC MYELOID LEUKAEMIA
     Dosage: 400 MG/DAY
     Route: 048
     Dates: start: 20070208, end: 20090401

REACTIONS (5)
  - ASTHENIA [None]
  - CALCULUS URINARY [None]
  - ECONOMIC PROBLEM [None]
  - FATIGUE [None]
  - FLANK PAIN [None]
